FAERS Safety Report 19748422 (Version 1)
Quarter: 2021Q3

REPORT INFORMATION
  Report Type: Spontaneous
  Country: US (occurrence: US)
  Receive Date: 20210825
  Receipt Date: 20210825
  Transmission Date: 20211014
  Serious: Yes (Hospitalization)
  Sender: FDA-Public Use
  Company Number: None

PATIENT
  Age: 60 Year
  Sex: Male
  Weight: 99 kg

DRUGS (7)
  1. ENOXAPARIN [Concomitant]
     Active Substance: ENOXAPARIN
     Dates: start: 20210812, end: 20210824
  2. MELATONIN [Concomitant]
     Active Substance: MELATONIN
     Dates: start: 20210813, end: 20210823
  3. BARICITINIB. [Suspect]
     Active Substance: BARICITINIB
     Indication: COVID-19 PNEUMONIA
     Route: 048
     Dates: start: 20210813, end: 20210821
  4. REMDESIVIR. [Suspect]
     Active Substance: REMDESIVIR
     Indication: COVID-19
     Route: 042
     Dates: start: 20210812, end: 20210812
  5. LISINOPRIL. [Concomitant]
     Active Substance: LISINOPRIL
     Dates: start: 20210812, end: 20210824
  6. REMDESIVIR. [Concomitant]
     Active Substance: REMDESIVIR
     Dates: start: 20210812, end: 20210812
  7. DEXAMETHASONE. [Concomitant]
     Active Substance: DEXAMETHASONE
     Dates: start: 20210812, end: 20210822

REACTIONS (2)
  - Transaminases increased [None]
  - Hepatomegaly [None]

NARRATIVE: CASE EVENT DATE: 20210821
